FAERS Safety Report 5265881-0 (Version None)
Quarter: 2007Q1

REPORT INFORMATION
  Report Type: 
  Country: None (occurrence: None)
  Receive Date: 20070312
  Receipt Date: 20070312
  Transmission Date: 20070707
  Serious: Yes (Death)
  Sender: FDA-Public Use
  Company Number: None

PATIENT
  Sex: Male
  Weight: 81.6475 kg

DRUGS (1)
  1. PROCRIT [Suspect]
     Dosage: 2000 MG THREE DAYS WK

REACTIONS (3)
  - ASTHENIA [None]
  - DEATH OF RELATIVE [None]
  - RENAL FAILURE [None]
